FAERS Safety Report 15116158 (Version 1)
Quarter: 2018Q2

REPORT INFORMATION
  Report Type: Spontaneous
  Country: US (occurrence: US)
  Receive Date: 20180612
  Receipt Date: 20180612
  Transmission Date: 20180711
  Serious: Yes (Hospitalization)
  Sender: FDA-Public Use
  Company Number: None

PATIENT
  Sex: Female

DRUGS (6)
  1. PROGESTERONE 200MG [Concomitant]
  2. FLUOXETINE 40MG [Concomitant]
     Active Substance: FLUOXETINE HYDROCHLORIDE
  3. LEVOTHYROXINE 100MCG [Concomitant]
     Active Substance: LEVOTHYROXINE
  4. OMEPRAZOLE 40MG [Concomitant]
     Active Substance: OMEPRAZOLE
  5. CAPECITABINE. [Suspect]
     Active Substance: CAPECITABINE
     Indication: COLON CANCER
     Dosage: ?          OTHER FREQUENCY:DAILY X 14/21 DAYS;?
     Route: 048
     Dates: start: 20180426
  6. ESTRADIOL 0.075MG PATCH [Concomitant]

REACTIONS (8)
  - Blood potassium decreased [None]
  - Fatigue [None]
  - Inflammation [None]
  - Vomiting [None]
  - Clostridium difficile infection [None]
  - Blood magnesium decreased [None]
  - Inflammatory bowel disease [None]
  - Diarrhoea [None]
